FAERS Safety Report 17942423 (Version 1)
Quarter: 2020Q2

REPORT INFORMATION
  Report Type: Spontaneous
  Country: DE (occurrence: DE)
  Receive Date: 20200625
  Receipt Date: 20200625
  Transmission Date: 20200714
  Serious: Yes (Other)
  Sender: FDA-Public Use
  Company Number: DE-ACCORD-186525

PATIENT
  Age: 62 Year
  Sex: Male

DRUGS (3)
  1. PREDNISONE. [Suspect]
     Active Substance: PREDNISONE
     Indication: IMMUNOSUPPRESSION
     Dosage: 10 MG Q.D
  2. MYCOPHENOLIC ACID. [Suspect]
     Active Substance: MYCOPHENOLIC ACID
     Indication: IMMUNOSUPPRESSION
     Dosage: LATER CONTINUED UNCHANGED
  3. CICLOSPORIN [Suspect]
     Active Substance: CYCLOSPORINE
     Indication: IMMUNOSUPPRESSION
     Dosage: (TARGET RANGE 135 (+/-) 30 NG / ML),

REACTIONS (3)
  - COVID-19 [Recovered/Resolved]
  - Anaemia [Not Recovered/Not Resolved]
  - Leukopenia [Not Recovered/Not Resolved]

NARRATIVE: CASE EVENT DATE: 20200313
